FAERS Safety Report 4587596-4 (Version None)
Quarter: 2005Q1

REPORT INFORMATION
  Report Type: 
  Country: None (occurrence: None)
  Receive Date: 20050125
  Receipt Date: 20041101
  Transmission Date: 20050727
  Serious: No
  Sender: FDA-Public Use
  Company Number: USA040978229

PATIENT
  Age: 78 Year
  Sex: Female
  Weight: 55 kg

DRUGS (14)
  1. FORTEO [Suspect]
     Indication: OSTEOPOROSIS
     Dosage: 20 UG/L DAY
     Dates: start: 20040601
  2. VITAMINS [Concomitant]
  3. PREMARIN [Concomitant]
  4. ATENOLOL [Concomitant]
  5. INDERAL (PROPANOLOL HYDROCHLORIDE) [Concomitant]
  6. RELAFEN [Concomitant]
  7. HYDROCHLOROTHIAZIDE [Concomitant]
  8. DONNATAL [Concomitant]
  9. CALCIUM PLUS D [Concomitant]
  10. THYROID TAB [Concomitant]
  11. BELLADONNA [Concomitant]
  12. PROTONIX [Concomitant]
  13. IRON [Concomitant]
  14. TUMS [Concomitant]

REACTIONS (2)
  - DIARRHOEA [None]
  - STOMACH DISCOMFORT [None]
